FAERS Safety Report 19252690 (Version 1)
Quarter: 2021Q2

REPORT INFORMATION
  Report Type: Spontaneous
  Country: US (occurrence: US)
  Receive Date: 20210513
  Receipt Date: 20210513
  Transmission Date: 20210717
  Serious: No
  Sender: FDA-Public Use
  Company Number: None

PATIENT
  Age: 58 Year
  Sex: Male

DRUGS (2)
  1. WARFARIN (WARFARIN NA (EXELAN) 2MG TAB) [Suspect]
     Active Substance: WARFARIN SODIUM
     Indication: ATRIAL FIBRILLATION
     Dates: start: 20200421
  2. ENOXAPARIN (ENOXAPARIN 150MG/ML INJ,SYRINGE,1ML) [Suspect]
     Active Substance: ENOXAPARIN
     Indication: MEDICAL PROCEDURE
     Dates: start: 20210426

REACTIONS (7)
  - Diverticulum intestinal haemorrhagic [None]
  - Haemorrhoids [None]
  - Diverticulum intestinal [None]
  - Gastric haemorrhage [None]
  - Large intestine polyp [None]
  - Haemorrhoidal haemorrhage [None]
  - Post procedural haemorrhage [None]

NARRATIVE: CASE EVENT DATE: 20210502
